FAERS Safety Report 9523107 (Version 1)
Quarter: 2013Q3

REPORT INFORMATION
  Report Type: Report from Study
  Country: CA (occurrence: CA)
  Receive Date: 20130913
  Receipt Date: 20130913
  Transmission Date: 20140515
  Serious: Yes (Hospitalization)
  Sender: FDA-Public Use
  Company Number: CA-BRISTOL-MYERS SQUIBB COMPANY-19366566

PATIENT
  Age: 57 Year
  Sex: Female

DRUGS (5)
  1. ORENCIA [Suspect]
     Indication: RHEUMATOID ARTHRITIS
     Dosage: 1 DF : 750 UNITS NOS.
     Dates: start: 2013
  2. METHOTREXATE [Concomitant]
  3. PLAQUENIL [Concomitant]
  4. ACTONEL [Concomitant]
  5. PANTOLOC [Concomitant]

REACTIONS (4)
  - Pulmonary oedema [Unknown]
  - Stomatitis [Unknown]
  - Nasal ulcer [Unknown]
  - Chills [Unknown]
